FAERS Safety Report 6370711-X (Version None)
Quarter: 2009Q3

REPORT INFORMATION
  Report Type: 
  Country: None (occurrence: None)
  Receive Date: 20090923
  Receipt Date: 20070718
  Transmission Date: 20100115
  Serious: Yes (Other)
  Sender: FDA-Public Use
  Company Number: US-ASTRAZENECA-2006UW25358

PATIENT
  Age: 51 Year
  Sex: Male
  Weight: 102.1 kg

DRUGS (11)
  1. SEROQUEL [Suspect]
     Indication: MENTAL DISORDER
     Route: 048
     Dates: start: 20031101, end: 20060101
  2. SEROQUEL [Suspect]
     Indication: INSOMNIA
     Route: 048
     Dates: start: 20031101, end: 20060101
  3. SEROQUEL [Suspect]
     Dosage: 25-50 MG
     Route: 048
     Dates: start: 20040408
  4. SEROQUEL [Suspect]
     Dosage: 25-50 MG
     Route: 048
     Dates: start: 20040408
  5. CLOZARIL [Concomitant]
  6. GEODON [Concomitant]
  7. RISPERDAL [Concomitant]
  8. CLONAZEPAM [Concomitant]
     Indication: ANXIETY
     Dosage: 0.25-0.75 MG AT THE BED TIME
     Route: 048
     Dates: start: 20040408
  9. PAXIL CR [Concomitant]
     Dosage: 10-37.5 MG AT BED TIME
     Route: 048
     Dates: start: 20040402
  10. HYDROXYZINE PAMOATE [Concomitant]
     Dosage: 25 MG 1 OR 2 CAPSULES AT BEDTIME
     Route: 048
     Dates: start: 20070413
  11. CYMBALTA [Concomitant]
     Dosage: 20 MG 2 CAPSULE EVERY MORNING
     Route: 048
     Dates: start: 20070413

REACTIONS (2)
  - DIABETIC KETOACIDOSIS [None]
  - TYPE 2 DIABETES MELLITUS [None]
